FAERS Safety Report 9597045 (Version 1)
Quarter: 2013Q4

REPORT INFORMATION
  Report Type: Spontaneous
  Country: US (occurrence: US)
  Receive Date: 20131004
  Receipt Date: 20131004
  Transmission Date: 20140711
  Serious: Yes (Hospitalization, Other)
  Sender: FDA-Public Use
  Company Number: US-TAKEDA-2013TUS001145

PATIENT
  Sex: 0

DRUGS (16)
  1. ACTOS [Suspect]
  2. ALLI [Suspect]
     Indication: WEIGHT LOSS DIET
     Dosage: UNK
     Route: 048
     Dates: start: 20130912
  3. ALLI [Suspect]
     Dosage: UNK
  4. FRUSEMIDE [Suspect]
     Indication: CARDIAC FAILURE CONGESTIVE
     Dosage: 20 MG, BID
     Route: 048
  5. NIASPAN [Suspect]
  6. METFORMIN HCL [Suspect]
  7. PLAVIX [Suspect]
  8. GLIPIZIDE [Suspect]
  9. NEXIUM /01479302/ [Suspect]
  10. DILTIAZEM HCL [Suspect]
  11. ENALAPRIL /00574902/ [Suspect]
  12. COUMADINE [Suspect]
  13. DIGOXIN [Suspect]
  14. CRESTOR [Suspect]
  15. POTASSIUM [Suspect]
  16. VICTOZA [Suspect]

REACTIONS (6)
  - Lung disorder [Unknown]
  - Urine output decreased [Not Recovered/Not Resolved]
  - Drug interaction [Unknown]
  - Fluid retention [Not Recovered/Not Resolved]
  - Weight increased [Not Recovered/Not Resolved]
  - Cardiac failure congestive [Unknown]
